FAERS Safety Report 8593476 (Version 2)
Quarter: 2012Q4

REPORT INFORMATION
  Report Type: 
  Country: US (occurrence: US)
  Receive Date: 20120604
  Receipt Date: 20120914
  Transmission Date: 20130627
  Serious: Yes (Hospitalization)
  Sender: FDA-Public Use
  Company Number: US-BAYER-2012-053189

PATIENT
  Age: 28 Year
  Sex: Female
  Weight: 99.77 kg

DRUGS (3)
  1. YAZ [Suspect]
     Indication: CONTRACEPTION
     Dosage: UNK
     Dates: start: 20090305, end: 200911
  2. NEXIUM [Concomitant]
     Indication: GASTROOESOPHAGEAL REFLUX DISEASE
     Dosage: 40 mg, QD
  3. PAROXETINE [Concomitant]
     Indication: ANXIETY
     Dosage: 1 pill daily
     Dates: start: 20090618, end: 200907

REACTIONS (6)
  - Cholelithiasis [None]
  - Cholecystitis acute [None]
  - Biliary dilatation [None]
  - Injury [None]
  - Pain [None]
  - Abdominal pain upper [None]
